FAERS Safety Report 6325584-8 (Version None)
Quarter: 2009Q3

REPORT INFORMATION
  Report Type: 
  Country: None (occurrence: None)
  Receive Date: 20090824
  Receipt Date: 20090724
  Transmission Date: 20100115
  Serious: No
  Sender: FDA-Public Use
  Company Number: US-ABBOTT-09P-163-0587593-00

PATIENT
  Sex: Male
  Weight: 204.3 kg

DRUGS (13)
  1. NIASPAN [Suspect]
     Indication: HIGH DENSITY LIPOPROTEIN DECREASED
     Route: 048
     Dates: start: 20090301, end: 20090401
  2. NIASPAN [Suspect]
     Route: 048
     Dates: start: 20090401, end: 20090501
  3. NIASPAN [Suspect]
     Route: 048
     Dates: start: 20090501, end: 20090701
  4. NIASPAN [Suspect]
     Route: 048
     Dates: start: 20090701
  5. ARTHROTEC [Concomitant]
     Indication: DRUG USE FOR UNKNOWN INDICATION
  6. LASIX [Concomitant]
     Indication: DRUG USE FOR UNKNOWN INDICATION
  7. ASPIRIN [Concomitant]
     Indication: DRUG USE FOR UNKNOWN INDICATION
  8. ACIPHEX [Concomitant]
     Indication: DRUG USE FOR UNKNOWN INDICATION
  9. VYTORIN [Concomitant]
     Indication: DRUG USE FOR UNKNOWN INDICATION
  10. VITAMIN D [Concomitant]
     Indication: DRUG USE FOR UNKNOWN INDICATION
  11. METAMUCIL [Concomitant]
     Indication: DRUG USE FOR UNKNOWN INDICATION
  12. NITROGLYCERIN [Concomitant]
     Indication: DRUG USE FOR UNKNOWN INDICATION
  13. CARVIDILOL [Concomitant]
     Indication: DRUG USE FOR UNKNOWN INDICATION

REACTIONS (3)
  - BLISTER [None]
  - ERYTHEMA [None]
  - PRURITUS [None]
